FAERS Safety Report 6824156-6 (Version None)
Quarter: 2010Q3

REPORT INFORMATION
  Report Type: 
  Country: None (occurrence: None)
  Receive Date: 20100708
  Receipt Date: 20100701
  Transmission Date: 20110219
  Serious: Yes (Death)
  Sender: FDA-Public Use
  Company Number: ZA-ABBOTT-10P-143-0636489-02

PATIENT
  Sex: Male
  Weight: 28.3 kg

DRUGS (3)
  1. RITONAVIR SOFT GELATIN CAPSULES [Suspect]
     Indication: HIV INFECTION
     Route: 048
     Dates: start: 20001031, end: 20100402
  2. TMC114 [Concomitant]
     Indication: HIV INFECTION
     Route: 048
     Dates: start: 20001031, end: 20100402
  3. TMC114 [Concomitant]
     Route: 048

REACTIONS (2)
  - PNEUMONIA BACTERIAL [None]
  - SEPSIS [None]
